FAERS Safety Report 4400778-7 (Version None)
Quarter: 2004Q3

REPORT INFORMATION
  Report Type: 
  Country: None (occurrence: None)
  Receive Date: 20040907
  Receipt Date: 20030604
  Transmission Date: 20050211
  Serious: No
  Sender: FDA-Public Use
  Company Number: US-BRISTOL-MYERS SQUIBB COMPANY-12292579

PATIENT
  Age: 80 Year
  Sex: Female
  Weight: 54 kg

DRUGS (11)
  1. COUMADIN [Suspect]
     Indication: ATRIAL FIBRILLATION
     Dosage: DOSAGE: 3MG AND 2.5MG ALTERNATING DAILY
     Route: 048
     Dates: start: 20030101
  2. AMIODARONE HCL [Suspect]
     Dates: start: 20021101
  3. ATENOLOL [Concomitant]
  4. BENICAR [Concomitant]
  5. LISINOPRIL [Concomitant]
  6. NIFEDIPINE [Concomitant]
  7. LIPITOR [Concomitant]
  8. MULTIVITAMIN [Concomitant]
  9. OS-CAL + D [Concomitant]
  10. GREEN TEA [Concomitant]
  11. TYLENOL [Concomitant]

REACTIONS (2)
  - JOINT STIFFNESS [None]
  - NEUROPATHY PERIPHERAL [None]
